FAERS Safety Report 4834174-5 (Version None)
Quarter: 2005Q4

REPORT INFORMATION
  Report Type: 
  Country: None (occurrence: None)
  Receive Date: 20051122
  Receipt Date: 20051110
  Transmission Date: 20060501
  Serious: Yes (Hospitalization)
  Sender: FDA-Public Use
  Company Number: FR-GILEAD-2005-0008927

PATIENT
  Age: 44 Year
  Sex: Female
  Weight: 56 kg

DRUGS (4)
  1. EMTRIVA [Suspect]
     Route: 048
     Dates: start: 20050804, end: 20050814
  2. VIREAD [Suspect]
     Route: 048
     Dates: start: 20050804, end: 20050814
  3. CRIXIVAN [Suspect]
     Route: 048
     Dates: end: 20050814
  4. NORVIR [Concomitant]
     Route: 048
     Dates: end: 20050814

REACTIONS (4)
  - ARTHRALGIA [None]
  - HYPERLACTACIDAEMIA [None]
  - MYALGIA [None]
  - VOMITING [None]
